FAERS Safety Report 16799879 (Version 2)
Quarter: 2019Q3

REPORT INFORMATION
  Report Type: Spontaneous
  Country: JP (occurrence: JP)
  Receive Date: 20190912
  Receipt Date: 20190916
  Transmission Date: 20191005
  Serious: Yes (Death, Hospitalization, Other)
  Sender: FDA-Public Use
  Company Number: JP-ASTRAZENECA-2019SF27688

PATIENT
  Age: 89 Year
  Sex: Male

DRUGS (1)
  1. TAGRISSO [Suspect]
     Active Substance: OSIMERTINIB
     Indication: NON-SMALL CELL LUNG CANCER
     Route: 048

REACTIONS (6)
  - Cellulitis [Unknown]
  - Depressed level of consciousness [Unknown]
  - Cardiac murmur [Unknown]
  - Cardiac dysfunction [Unknown]
  - Interstitial lung disease [Fatal]
  - Pseudomembranous colitis [Unknown]

NARRATIVE: CASE EVENT DATE: 20190904
